FAERS Safety Report 24347657 (Version 4)
Quarter: 2024Q4

REPORT INFORMATION
  Report Type: Spontaneous
  Country: US (occurrence: US)
  Receive Date: 20240922
  Receipt Date: 20241107
  Transmission Date: 20250115
  Serious: Yes (Other)
  Sender: JOHNSON AND JOHNSON
  Company Number: US-JNJFOC-20240937331

PATIENT
  Age: 39 Year
  Sex: Male

DRUGS (1)
  1. SYMTUZA [Suspect]
     Active Substance: COBICISTAT\DARUNAVIR\EMTRICITABINE\TENOFOVIR ALAFENAMIDE
     Indication: HIV infection
     Dosage: 800.00 MG / 150.00 MG / 200.00 MG / 10.00 MG
     Route: 048

REACTIONS (7)
  - Drug ineffective [Unknown]
  - Viral load increased [Recovered/Resolved]
  - Diarrhoea [Recovered/Resolved]
  - Dyspepsia [Unknown]
  - Adverse drug reaction [Unknown]
  - Product complaint [Unknown]
  - Product label counterfeit [Unknown]
